FAERS Safety Report 6120032-5 (Version None)
Quarter: 2009Q1

REPORT INFORMATION
  Report Type: 
  Country: None (occurrence: None)
  Receive Date: 20090316
  Receipt Date: 20090309
  Transmission Date: 20090719
  Serious: No
  Sender: FDA-Public Use
  Company Number: US-B.I. PHARMACEUTICALS,INC./RIDGEFIELD-2009-BP-03001BP

PATIENT
  Age: 67 Year
  Sex: Male

DRUGS (4)
  1. FLOMAX [Suspect]
     Indication: BENIGN PROSTATIC HYPERPLASIA
     Route: 048
     Dates: start: 20060101
  2. CARDURA [Concomitant]
     Indication: HYPERTENSION
     Route: 048
  3. LOTENSIN [Concomitant]
     Indication: BLOOD CHOLESTEROL INCREASED
     Route: 048
  4. AVODART [Concomitant]
     Route: 048

REACTIONS (2)
  - RASH ERYTHEMATOUS [None]
  - WRONG TECHNIQUE IN DRUG USAGE PROCESS [None]
